FAERS Safety Report 10811676 (Version 1)
Quarter: 2015Q1

REPORT INFORMATION
  Report Type: Report from Study
  Country: US (occurrence: US)
  Receive Date: 20150217
  Receipt Date: 20150217
  Transmission Date: 20150721
  Serious: No
  Sender: FDA-Public Use
  Company Number: US-ABBVIE-14K-163-1270609-00

PATIENT
  Age: 22 Year
  Sex: Female
  Weight: 54.48 kg

DRUGS (4)
  1. HUMIRA [Suspect]
     Active Substance: ADALIMUMAB
     Indication: COLITIS ULCERATIVE
     Dosage: EARLY 2014
     Dates: start: 2014, end: 2014
  2. HUMIRA [Suspect]
     Active Substance: ADALIMUMAB
     Dosage: FOUR WEEKS AFTER 160 MG DOSE
     Dates: start: 2014
  3. HUMIRA [Suspect]
     Active Substance: ADALIMUMAB
     Dosage: TWO WEEKS AFTER 160 MG DOSE
     Dates: start: 2014, end: 2014
  4. UNNAMED MEDICATION [Concomitant]
     Active Substance: UNSPECIFIED INGREDIENT
     Indication: CONTRACEPTION

REACTIONS (9)
  - Injection site bruising [Recovered/Resolved]
  - Anxiety [Not Recovered/Not Resolved]
  - Wrong technique in drug usage process [Unknown]
  - Palpitations [Not Recovered/Not Resolved]
  - Drug dose omission [Unknown]
  - Injection site pain [Not Recovered/Not Resolved]
  - Wrong technique in drug usage process [Unknown]
  - Vascular injury [Recovered/Resolved]
  - Injection site haemorrhage [Recovered/Resolved]

NARRATIVE: CASE EVENT DATE: 2014
